FAERS Safety Report 6769409-5 (Version None)
Quarter: 2010Q2

REPORT INFORMATION
  Report Type: 
  Country: None (occurrence: None)
  Receive Date: 20100615
  Receipt Date: 20100607
  Transmission Date: 20101027
  Serious: Yes (Life-Threatening, Hospitalization)
  Sender: FDA-Public Use
  Company Number: DE-TEVA-237326ISR

PATIENT
  Age: 79 Year
  Sex: Female
  Weight: 69 kg

DRUGS (5)
  1. SIMVASTATIN [Suspect]
     Indication: HYPERLIPIDAEMIA
     Route: 048
     Dates: start: 20000101
  2. RAMIPRIL [Interacting]
     Indication: HYPERTENSION
     Route: 048
     Dates: start: 20000101
  3. SPIRONOLACTONE [Interacting]
     Indication: RENAL FAILURE CHRONIC
     Route: 048
     Dates: start: 20081001, end: 20081208
  4. PHENPROCOUMON [Interacting]
     Indication: ATRIAL FIBRILLATION
     Route: 048
     Dates: start: 20080401
  5. ALLOPURINOL [Interacting]
     Indication: HYPERURICAEMIA
     Route: 048
     Dates: start: 20000101

REACTIONS (2)
  - COAGULOPATHY [None]
  - HYPERKALAEMIA [None]
